FAERS Safety Report 19012417 (Version 2)
Quarter: 2021Q1

REPORT INFORMATION
  Report Type: Spontaneous
  Country: US (occurrence: US)
  Receive Date: 20210315
  Receipt Date: 20210319
  Transmission Date: 20210420
  Serious: Yes (Hospitalization, Other)
  Sender: FDA-Public Use
  Company Number: US-PFIZER INC-2021261481

PATIENT
  Age: 56 Year
  Sex: Male

DRUGS (2)
  1. PROPOFOL. [Suspect]
     Active Substance: PROPOFOL
     Indication: SEDATION
     Dosage: UNK
  2. PROPOFOL. [Suspect]
     Active Substance: PROPOFOL
     Indication: MECHANICAL VENTILATION

REACTIONS (4)
  - Apnoea [Recovering/Resolving]
  - Agitation [Recovering/Resolving]
  - Muscle contractions involuntary [Recovering/Resolving]
  - Myoclonus [Recovering/Resolving]
